FAERS Safety Report 21388332 (Version 2)
Quarter: 2022Q4

REPORT INFORMATION
  Report Type: Spontaneous
  Country: US (occurrence: US)
  Receive Date: 20220928
  Receipt Date: 20221107
  Transmission Date: 20230113
  Serious: No
  Sender: FDA-Public Use
  Company Number: US-Calliditas-2022CAL00342

PATIENT
  Age: 40 Year
  Sex: Female

DRUGS (12)
  1. TARPEYO [Suspect]
     Active Substance: BUDESONIDE
     Indication: Haematuria
     Dosage: 16 MG (4 MG CAPSULES) ONCE DAILY
     Route: 048
     Dates: start: 20220818
  2. LEVOTHYROXINE [Concomitant]
     Active Substance: LEVOTHYROXINE
  3. LOSARTAN [Concomitant]
     Active Substance: LOSARTAN
  4. FERROUS GLUCONATE [Concomitant]
     Active Substance: FERROUS GLUCONATE
  5. IBUPROFEN [Concomitant]
     Active Substance: IBUPROFEN
     Indication: Dysmenorrhoea
  6. MINERALS\VITAMINS [Concomitant]
     Active Substance: MINERALS\VITAMINS
  7. FUROSEMIDE [Concomitant]
     Active Substance: FUROSEMIDE
  8. FAMOTIDINE [Concomitant]
     Active Substance: FAMOTIDINE
  9. LORATADINE [Concomitant]
     Active Substance: LORATADINE
  10. FLUTICASONE [Concomitant]
     Active Substance: FLUTICASONE
  11. AZELASTINE [Concomitant]
     Active Substance: AZELASTINE
  12. EPINEPHRINE [Concomitant]
     Active Substance: EPINEPHRINE

REACTIONS (6)
  - Paraesthesia [Recovered/Resolved]
  - Blood pressure decreased [Recovered/Resolved]
  - Blood pressure increased [Unknown]
  - Uterine leiomyoma [Unknown]
  - Hypersensitivity [Unknown]
  - Polymenorrhoea [Unknown]

NARRATIVE: CASE EVENT DATE: 20220801
